FAERS Safety Report 8926417 (Version 1)
Quarter: 2012Q4

REPORT INFORMATION
  Report Type: 
  Country: DE (occurrence: DE)
  Receive Date: 20121126
  Receipt Date: 20121126
  Transmission Date: 20130627
  Serious: Yes (Disabling)
  Sender: FDA-Public Use
  Company Number: DE-SANOFI-AVENTIS-2012SA068705

PATIENT
  Age: 63 Year
  Sex: Male
  Weight: 48 kg

DRUGS (9)
  1. RILUTEK [Suspect]
     Indication: AMYOTROPHIC LATERAL SCLEROSIS
     Route: 048
     Dates: start: 200407
  2. LIMPTAR [Interacting]
     Indication: MUSCLE CRAMPS
     Route: 065
  3. ATROPINE SULFATE [Interacting]
     Indication: INCREASED SALIVATION
     Route: 065
     Dates: start: 200810
  4. IBUPROFEN [Interacting]
     Indication: PAIN
     Route: 065
  5. PROSTAGUTT FORTE [Concomitant]
  6. DYTIDE H [Concomitant]
  7. MOVICOL [Concomitant]
  8. DEKRISTOL [Concomitant]
     Route: 048
  9. DEKRISTOL [Concomitant]
     Route: 048

REACTIONS (3)
  - General physical health deterioration [Not Recovered/Not Resolved]
  - Drug interaction [Not Recovered/Not Resolved]
  - Dizziness [Not Recovered/Not Resolved]
